FAERS Safety Report 6529036-1 (Version None)
Quarter: 2009Q4

REPORT INFORMATION
  Report Type: 
  Country: None (occurrence: None)
  Receive Date: 20091229
  Receipt Date: 20091214
  Transmission Date: 20100525
  Serious: Yes (Other)
  Sender: FDA-Public Use
  Company Number: 2009AP004616

PATIENT
  Age: 22 Year
  Sex: Male

DRUGS (7)
  1. MYCOPHENOLATE MOFETIL [Suspect]
     Indication: IMMUNOSUPPRESSION
  2. TACROLIMUS [Suspect]
     Indication: IMMUNOSUPPRESSION
  3. AZATHIOPRINE [Suspect]
     Indication: IMMUNOSUPPRESSION
  4. ACETAMINOPHEN [Suspect]
  5. METHYLPREDNISOLONE [Suspect]
     Dosage: IV
     Route: 042
  6. COCAINE (COCAINE) [Suspect]
  7. ANAESTHETICS (ANAESTHETICS) [Suspect]

REACTIONS (16)
  - ABDOMINAL DISTENSION [None]
  - CONDITION AGGRAVATED [None]
  - CONTINUOUS HAEMODIAFILTRATION [None]
  - DRUG ABUSE [None]
  - FAT NECROSIS [None]
  - HEPATIC FAILURE [None]
  - HEPATIC FUNCTION ABNORMAL [None]
  - HEPATIC STEATOSIS [None]
  - LIVER TRANSPLANT REJECTION [None]
  - MALAISE [None]
  - OVERDOSE [None]
  - PANCREATITIS HAEMORRHAGIC [None]
  - PANCREATITIS NECROTISING [None]
  - SEPSIS [None]
  - TACHYCARDIA [None]
  - VOMITING [None]
